FAERS Safety Report 4363677-5 (Version None)
Quarter: 2004Q2

REPORT INFORMATION
  Report Type: 
  Country: None (occurrence: None)
  Receive Date: 20040517
  Receipt Date: 20040415
  Transmission Date: 20050107
  Serious: No
  Sender: FDA-Public Use
  Company Number: S04-USA-02123-01

PATIENT
  Age: 67 Year
  Sex: Female

DRUGS (6)
  1. NAMENDA [Suspect]
     Indication: DEMENTIA
     Route: 065
  2. ARICEPT [Concomitant]
  3. EFFEXOR [Concomitant]
  4. RISPERDAL [Concomitant]
  5. AMBIEN [Concomitant]
  6. XANAX [Concomitant]

REACTIONS (1)
  - ANXIETY [None]
